FAERS Safety Report 9147087 (Version 1)
Quarter: 2013Q1

REPORT INFORMATION
  Report Type: Spontaneous
  Country: IT (occurrence: IT)
  Receive Date: 20130307
  Receipt Date: 20130307
  Transmission Date: 20140127
  Serious: Yes (Hospitalization)
  Sender: FDA-Public Use
  Company Number: IT-BAYER-2013-029292

PATIENT
  Age: 88 Year
  Sex: Male

DRUGS (2)
  1. CARDIOASPIRIN [Suspect]
     Indication: PROPHYLAXIS
     Dosage: 100 MG, QD
     Route: 048
     Dates: start: 20100101, end: 20130128
  2. ALIFLUS [Concomitant]
     Indication: CHRONIC OBSTRUCTIVE PULMONARY DISEASE
     Dosage: DAILY DOSE 2 DF
     Route: 055

REACTIONS (3)
  - Gastric ulcer [Recovering/Resolving]
  - Gastritis [Recovering/Resolving]
  - Anaemia [Recovering/Resolving]
